FAERS Safety Report 20662470 (Version 1)
Quarter: 2022Q2

REPORT INFORMATION
  Report Type: Spontaneous
  Country: GB (occurrence: GB)
  Receive Date: 20220401
  Receipt Date: 20220401
  Transmission Date: 20220721
  Serious: Yes (Other)
  Sender: FDA-Public Use
  Company Number: GB-MHRA-TPP28155288C9334145YC1647860965817

PATIENT
  Age: 53 Year
  Sex: Female
  Weight: 99 kg

DRUGS (8)
  1. NITROFURANTOIN [Suspect]
     Active Substance: NITROFURANTOIN
     Indication: Ill-defined disorder
     Dosage: UNK
     Route: 065
     Dates: start: 20220321
  2. AMOXICILLIN [Concomitant]
     Active Substance: AMOXICILLIN
     Indication: Ill-defined disorder
     Dosage: UNK(TAKE ONE 3 TIMES/DAY)
     Route: 065
     Dates: start: 20220104
  3. FEXOFENADINE [Concomitant]
     Active Substance: FEXOFENADINE HYDROCHLORIDE
     Indication: Ill-defined disorder
     Dosage: UNK(TAKE ONE DAILY)
     Route: 065
     Dates: start: 20220321
  4. NAPROXEN [Concomitant]
     Active Substance: NAPROXEN
     Indication: Ill-defined disorder
     Dosage: UNK(ONE TABLET TWICE A DAY AFTER FOOD)
     Route: 065
     Dates: start: 20220210
  5. NITROFURANTOIN [Concomitant]
     Active Substance: NITROFURANTOIN
     Indication: Ill-defined disorder
     Dosage: UNK(TAKE ONE TWICE DAILY)
     Route: 065
     Dates: start: 20220317
  6. OMEPRAZOLE [Concomitant]
     Active Substance: OMEPRAZOLE
     Indication: Ill-defined disorder
     Dosage: UNK(TAKE ONE TABLET BEFORE BREAKFAST)
     Route: 065
     Dates: start: 20220210
  7. PREDNISOLONE [Concomitant]
     Active Substance: PREDNISOLONE
     Indication: Ill-defined disorder
     Dosage: UNK(TAKE SIX TABLETS (30MG) ONCE A DAY
     Route: 065
     Dates: start: 20220321
  8. RAMIPRIL [Concomitant]
     Active Substance: RAMIPRIL
     Indication: Ill-defined disorder
     Dosage: UNK(TAKE ONE DAILY)
     Route: 065
     Dates: start: 20220208

REACTIONS (3)
  - Dermatitis bullous [Unknown]
  - Musculoskeletal stiffness [Unknown]
  - Chills [Unknown]

NARRATIVE: CASE EVENT DATE: 20220321
